FAERS Safety Report 19380015 (Version 1)
Quarter: 2021Q2

REPORT INFORMATION
  Report Type: Spontaneous
  Country: US (occurrence: US)
  Receive Date: 20210607
  Receipt Date: 20210607
  Transmission Date: 20210717
  Serious: No
  Sender: FDA-Public Use
  Company Number: US-TEVA-2021-US-1913873

PATIENT
  Age: 48 Year
  Sex: Male
  Weight: 131.54 kg

DRUGS (4)
  1. PHENTERMINE. [Suspect]
     Active Substance: PHENTERMINE
     Route: 065
  2. ADIPEX?P [Suspect]
     Active Substance: PHENTERMINE HYDROCHLORIDE
     Indication: WEIGHT CONTROL
     Dosage: IN THE MORNING DAILY (CONTINUOUSLY), WHITE ADIPEX?P TABLET
     Route: 065
     Dates: start: 2020
  3. ADIPEX?P [Suspect]
     Active Substance: PHENTERMINE HYDROCHLORIDE
     Route: 065
  4. ADIPEX?P [Suspect]
     Active Substance: PHENTERMINE HYDROCHLORIDE
     Route: 065

REACTIONS (4)
  - Drug effect less than expected [Unknown]
  - Drug ineffective [Unknown]
  - Decreased activity [Unknown]
  - Asthenia [Unknown]
